FAERS Safety Report 22204656 (Version 2)
Quarter: 2023Q2

REPORT INFORMATION
  Report Type: Spontaneous
  Country: US (occurrence: None)
  Receive Date: 20230413
  Receipt Date: 20230505
  Transmission Date: 20230721
  Serious: No
  Sender: FDA-Public Use
  Company Number: 2023A068979

PATIENT
  Sex: Male

DRUGS (7)
  1. BYDUREON BCISE [Suspect]
     Active Substance: EXENATIDE
     Indication: Type 2 diabetes mellitus
  2. BYDUREON [Suspect]
     Active Substance: EXENATIDE
  3. METFORMIN [Concomitant]
     Active Substance: METFORMIN HYDROCHLORIDE
  4. ATORVASTATIN [Concomitant]
     Active Substance: ATORVASTATIN
  5. LISINOPRIL [Concomitant]
     Active Substance: LISINOPRIL
  6. GLIPIZIDE [Concomitant]
     Active Substance: GLIPIZIDE
  7. ALPRAZOLAM [Concomitant]
     Active Substance: ALPRAZOLAM
     Indication: Anxiety
     Dosage: AS REQUIRED

REACTIONS (7)
  - Stress [Unknown]
  - Weight increased [Unknown]
  - Weight abnormal [Unknown]
  - Device malfunction [Unknown]
  - Device use issue [Unknown]
  - Device leakage [Unknown]
  - Device malfunction [Unknown]
